FAERS Safety Report 20424786 (Version 1)
Quarter: 2022Q1

REPORT INFORMATION
  Report Type: Report from Study
  Country: US (occurrence: US)
  Receive Date: 20220204
  Receipt Date: 20220204
  Transmission Date: 20220423
  Serious: No
  Sender: FDA-Public Use
  Company Number: US-EXELIXIS-CABO-21039005

PATIENT
  Age: 35 Year
  Sex: Male
  Weight: 67 kg

DRUGS (10)
  1. CABOMETYX [Suspect]
     Active Substance: CABOZANTINIB S-MALATE
     Indication: Clear cell renal cell carcinoma
     Dosage: 40 MG, QD
     Route: 048
     Dates: start: 20210314
  2. NIVOLUMAB [Suspect]
     Active Substance: NIVOLUMAB
     Indication: Clear cell renal cell carcinoma
     Dosage: 480 MG, Q4WEEKS
     Dates: start: 20210324, end: 20210712
  3. PREDNISONE [Concomitant]
     Active Substance: PREDNISONE
  4. POTASSIUM AND SODIUM PHOSPHATE [Concomitant]
  5. OXYCODONE [Concomitant]
     Active Substance: OXYCODONE
  6. TRAZODONE [Concomitant]
     Active Substance: TRAZODONE HYDROCHLORIDE
  7. PROCHLORPERAZINE [Concomitant]
     Active Substance: PROCHLORPERAZINE
  8. DIPHENHYDRAMINE-LIDOCAINE-MAALOX [Concomitant]
  9. TYLENOL [Concomitant]
     Active Substance: ACETAMINOPHEN
  10. DOCUSATE SODIUM\SENNOSIDES [Concomitant]
     Active Substance: DOCUSATE SODIUM\SENNOSIDES

REACTIONS (13)
  - Oral herpes [Recovered/Resolved]
  - Hyperkeratosis [Unknown]
  - Sensitive skin [Recovering/Resolving]
  - Oral pain [Recovered/Resolved]
  - Dry mouth [Recovered/Resolved]
  - Dry skin [Recovering/Resolving]
  - Decreased appetite [Recovering/Resolving]
  - Fatigue [Not Recovered/Not Resolved]
  - Pain in extremity [Recovering/Resolving]
  - Hypophosphataemia [Recovered/Resolved]
  - Diarrhoea [Recovered/Resolved]
  - Arthralgia [Recovering/Resolving]
  - Joint swelling [Recovering/Resolving]

NARRATIVE: CASE EVENT DATE: 20210323
